FAERS Safety Report 10409479 (Version 1)
Quarter: 2014Q2

REPORT INFORMATION
  Report Type: Spontaneous
  Country: US (occurrence: None)
  Receive Date: 20140530
  Receipt Date: 20140530
  Transmission Date: 20141212
  Serious: No
  Sender: FDA-Public Use
  Company Number: 227520LEO

PATIENT
  Sex: Female

DRUGS (1)
  1. PICATO (INGENOL MEBUTATE) (0.015 %, GEL) [Suspect]
     Indication: PRODUCT USED FOR UNKNOWN INDICATION
     Dosage: (1 IN 1 D), TOPICAL
     Route: 061

REACTIONS (5)
  - Seborrhoeic keratosis [None]
  - Application site erythema [None]
  - Application site scab [None]
  - Application site vesicles [None]
  - Incorrect drug administration duration [None]
